FAERS Safety Report 17926015 (Version 3)
Quarter: 2020Q4

REPORT INFORMATION
  Report Type: Report from Study
  Country: US (occurrence: US)
  Receive Date: 20200622
  Receipt Date: 20201231
  Transmission Date: 20210113
  Serious: No
  Sender: FDA-Public Use
  Company Number: NVSC2020US174784

PATIENT
  Age: 75 Year
  Sex: Male
  Weight: 126.98 kg

DRUGS (2)
  1. ENTRESTO [Suspect]
     Active Substance: SACUBITRIL\VALSARTAN
     Dosage: 100 MG, BID (49/51 MG)
     Route: 048
  2. ENTRESTO [Suspect]
     Active Substance: SACUBITRIL\VALSARTAN
     Indication: PRODUCT USED FOR UNKNOWN INDICATION
     Dosage: 100 MG, BID
     Route: 048
     Dates: start: 202002

REACTIONS (6)
  - Sleep disorder [Recovering/Resolving]
  - Cough [Unknown]
  - Blood iron decreased [Unknown]
  - Weight fluctuation [Unknown]
  - Change of bowel habit [Unknown]
  - Throat clearing [Unknown]

NARRATIVE: CASE EVENT DATE: 202002
